FAERS Safety Report 20649733 (Version 1)
Quarter: 2022Q1

REPORT INFORMATION
  Report Type: Spontaneous
  Country: US (occurrence: US)
  Receive Date: 20220329
  Receipt Date: 20220329
  Transmission Date: 20220423
  Serious: No
  Sender: FDA-Public Use
  Company Number: US-PERRIGO-21US004708

PATIENT

DRUGS (1)
  1. ACETAMINOPHEN [Suspect]
     Active Substance: ACETAMINOPHEN
     Indication: Analgesic therapy
     Dosage: 650 MG, ONCE NIGHTLY
     Route: 048
     Dates: start: 202103

REACTIONS (2)
  - Drug effect less than expected [Unknown]
  - Underdose [Unknown]

NARRATIVE: CASE EVENT DATE: 20210301
